FAERS Safety Report 13039802 (Version 1)
Quarter: 2016Q4

REPORT INFORMATION
  Report Type: Spontaneous
  Country: US (occurrence: US)
  Receive Date: 20161219
  Receipt Date: 20161219
  Transmission Date: 20170207
  Serious: No
  Sender: FDA-Public Use
  Company Number: US-ACTELION-A-US2016-141702

PATIENT
  Age: 78 Year
  Sex: Male

DRUGS (5)
  1. UPTRAVI [Suspect]
     Active Substance: SELEXIPAG
     Indication: PULMONARY HYPERTENSION
     Dosage: 800 MCG, BID
     Route: 048
     Dates: start: 20160727
  2. UPTRAVI [Suspect]
     Active Substance: SELEXIPAG
     Dosage: 1000 MCG, UNK
     Route: 048
     Dates: start: 201608
  3. COUMADIN [Concomitant]
     Active Substance: WARFARIN SODIUM
  4. SILDENAFIL. [Concomitant]
     Active Substance: SILDENAFIL
  5. UPTRAVI [Suspect]
     Active Substance: SELEXIPAG
     Dosage: 600 MCG, BID
     Route: 048
     Dates: start: 20160830

REACTIONS (6)
  - Rash [Unknown]
  - Headache [Unknown]
  - Peripheral swelling [Unknown]
  - Diarrhoea [Unknown]
  - Pain in jaw [Unknown]
  - Pain in extremity [Unknown]
